FAERS Safety Report 9773245 (Version 1)
Quarter: 2013Q4

REPORT INFORMATION
  Report Type: Spontaneous
  Country: US (occurrence: US)
  Receive Date: 20131219
  Receipt Date: 20131219
  Transmission Date: 20140711
  Serious: Yes (Other)
  Sender: FDA-Public Use
  Company Number: US-GLAXOSMITHKLINE-A1054027A

PATIENT
  Sex: 0

DRUGS (3)
  1. LAMICTAL [Suspect]
     Indication: CONVULSION
     Route: 065
  2. KEPPRA [Suspect]
     Indication: CONVULSION
     Route: 065
  3. VIMPAT [Suspect]
     Indication: CONVULSION
     Route: 065

REACTIONS (12)
  - Convulsion [Unknown]
  - Convulsion [Unknown]
  - Muscle twitching [Unknown]
  - Vision blurred [Unknown]
  - Somnolence [Unknown]
  - Sensation of heaviness [Unknown]
  - Hypoaesthesia oral [Unknown]
  - Myalgia [Unknown]
  - Musculoskeletal disorder [Unknown]
  - Adverse drug reaction [Unknown]
  - Drug ineffective [Unknown]
  - Inappropriate schedule of drug administration [Unknown]
